FAERS Safety Report 8609252-5 (Version None)
Quarter: 2012Q3

REPORT INFORMATION
  Report Type: 
  Country: None (occurrence: None)
  Receive Date: 20120821
  Receipt Date: 20120814
  Transmission Date: 20120928
  Serious: Yes (Hospitalization)
  Sender: FDA-Public Use
  Company Number: NZ-B.I. PHARMACEUTICALS,INC./RIDGEFIELD-2012-AU-01440AU

PATIENT
  Age: 73 Year
  Sex: Female

DRUGS (5)
  1. FUROSEMIDE [Concomitant]
     Indication: CARDIAC FAILURE CONGESTIVE
     Dosage: 160 MG
     Route: 048
  2. PRADAXA [Suspect]
     Indication: ATRIAL FIBRILLATION
     Dosage: 220 MG
     Route: 048
     Dates: start: 20120321, end: 20120325
  3. CANDESARTAN CILEXETIL [Concomitant]
     Indication: ESSENTIAL HYPERTENSION
     Dosage: 8 MG
     Route: 048
  4. SIMVASTATIN [Concomitant]
     Indication: MYOCARDIAL ISCHAEMIA
     Dosage: 20 MG
     Route: 048
  5. METFORMIN [Concomitant]
     Indication: TYPE 2 DIABETES MELLITUS
     Dosage: 1 G
     Route: 048

REACTIONS (3)
  - MELAENA [None]
  - CONFUSIONAL STATE [None]
  - HAEMATURIA [None]
